FAERS Safety Report 6800878-8 (Version None)
Quarter: 2010Q2

REPORT INFORMATION
  Report Type: 
  Country: None (occurrence: None)
  Receive Date: 20100629
  Receipt Date: 20100618
  Transmission Date: 20101027
  Serious: Yes (Other)
  Sender: FDA-Public Use
  Company Number: JP-JNJFOC-20100602321

PATIENT
  Sex: Male

DRUGS (10)
  1. DORIPENEM MONOHYDRATE [Suspect]
     Indication: SEPSIS
     Route: 041
  2. DORIPENEM MONOHYDRATE [Suspect]
     Indication: PSEUDOMONAS INFECTION
     Route: 041
  3. CIPROFLOXACIN [Concomitant]
     Indication: SEPSIS
     Route: 042
  4. CIPROFLOXACIN [Concomitant]
     Indication: PSEUDOMONAS INFECTION
     Route: 042
  5. NIFEDIPINE [Concomitant]
     Indication: HYPERTENSION
     Route: 048
  6. DIOVAN [Concomitant]
     Indication: HYPERTENSION
     Route: 048
  7. GASTER D [Concomitant]
     Indication: GASTRITIS
     Route: 048
  8. LULLAN [Concomitant]
     Indication: ANXIETY DISORDER
     Route: 048
  9. PAXIL [Concomitant]
     Indication: ANXIETY DISORDER
     Route: 048
  10. MUCOSTA [Concomitant]
     Indication: GASTRITIS
     Route: 048

REACTIONS (1)
  - CONVULSION [None]
